FAERS Safety Report 6208675-1 (Version None)
Quarter: 2009Q2

REPORT INFORMATION
  Report Type: 
  Country: None (occurrence: None)
  Receive Date: 20090522
  Receipt Date: 20090311
  Transmission Date: 20091009
  Serious: No
  Sender: FDA-Public Use
  Company Number: 8043882

PATIENT
  Age: 38 Year
  Sex: Female
  Weight: 68 kg

DRUGS (5)
  1. CIMZIA [Suspect]
     Indication: CROHN'S DISEASE
     Dosage: 400 MG SC
     Route: 058
     Dates: start: 20090206
  2. FLAGYL [Concomitant]
  3. CELEXA [Concomitant]
  4. SINGULAIR [Concomitant]
  5. ZYRTEC [Concomitant]

REACTIONS (5)
  - ARTHRALGIA [None]
  - CHILLS [None]
  - IMPLANT SITE EFFUSION [None]
  - RASH [None]
  - STAPHYLOCOCCAL INFECTION [None]
